FAERS Safety Report 9616909 (Version 1)
Quarter: 2013Q4

REPORT INFORMATION
  Report Type: Spontaneous
  Country: US (occurrence: None)
  Receive Date: 20131010
  Receipt Date: 20131010
  Transmission Date: 20140711
  Serious: Yes (Hospitalization)
  Sender: FDA-Public Use
  Company Number: None

PATIENT
  Age: 61 Year
  Sex: Female

DRUGS (1)
  1. PROLIA [Suspect]
     Route: 058
     Dates: start: 20130416, end: 20130416

REACTIONS (7)
  - Sinusitis [None]
  - Bronchitis [None]
  - Rash [None]
  - Ingrowing nail [None]
  - Diverticulitis [None]
  - Urinary tract infection [None]
  - Rash [None]
